FAERS Safety Report 8800023 (Version 2)
Quarter: 2013Q4

REPORT INFORMATION
  Report Type: Spontaneous
  Country: FR (occurrence: FR)
  Receive Date: 20120921
  Receipt Date: 20131218
  Transmission Date: 20140711
  Serious: Yes (Hospitalization, Other)
  Sender: FDA-Public Use
  Company Number: PHHY2012FR080428

PATIENT
  Age: 65 Year
  Sex: Male

DRUGS (14)
  1. RIAMET [Suspect]
     Indication: MALARIA
     Dosage: UNK UKN, UNK
     Dates: start: 20120817, end: 20120819
  2. BISOPROLOL [Suspect]
     Indication: ATRIAL FIBRILLATION
     Dosage: 5 MG, UNK
     Route: 048
     Dates: start: 20120817
  3. BISOPROLOL [Suspect]
     Dosage: 5 MG IN THE MORNING AND 2.5MG IN THE EVENING
     Dates: start: 20120821
  4. FUROSEMIDE [Suspect]
     Indication: ATRIAL FIBRILLATION
     Dosage: 20 MG, DAILY
     Route: 042
  5. FUROSEMIDE [Suspect]
     Dosage: 40 MG, IN THE MORNING
     Route: 042
     Dates: start: 201208, end: 20120827
  6. ARTESUNATE [Suspect]
     Indication: MALARIA
     Dosage: 192 MG, UNK
     Dates: start: 20120814, end: 20120816
  7. CEFOTAXIME [Suspect]
     Indication: BACTERIAL INFECTION
     Dosage: 1 G, QID
     Route: 042
  8. CORDARONE [Suspect]
     Indication: ATRIAL FIBRILLATION
     Dosage: UNK UKN, UNK
     Dates: start: 201208, end: 201208
  9. DIFFU-K [Concomitant]
     Dosage: 2 DF, BID
     Route: 048
     Dates: start: 201208
  10. DIFFU-K [Concomitant]
     Dosage: 1 DF, BID
     Dates: end: 201209
  11. PREVISCAN [Concomitant]
     Indication: ANTICOAGULANT THERAPY
     Dosage: 1 DF, UNK
     Dates: start: 201208
  12. PREVISCAN [Concomitant]
     Dosage: INCREASED DOSAGE
  13. PREVISCAN [Concomitant]
     Dosage: 1 TABLET IN EVENING
  14. MAGNESIUM SULFATE [Concomitant]

REACTIONS (17)
  - Haemolytic anaemia [Recovered/Resolved]
  - Interstitial lung disease [Unknown]
  - Rales [Unknown]
  - Hypoxia [Unknown]
  - Hookworm infection [Unknown]
  - Diarrhoea [Unknown]
  - Nematodiasis [Unknown]
  - Abdominal distension [Unknown]
  - Hepatocellular injury [Unknown]
  - Fatigue [Unknown]
  - Jaundice [Unknown]
  - Asthenia [Unknown]
  - Chromaturia [Unknown]
  - Decreased appetite [Unknown]
  - Dry mouth [Unknown]
  - Thirst [Unknown]
  - Ejection fraction decreased [Unknown]
